FAERS Safety Report 6102274-8 (Version None)
Quarter: 2009Q1

REPORT INFORMATION
  Report Type: 
  Country: None (occurrence: None)
  Receive Date: 20090304
  Receipt Date: 20090220
  Transmission Date: 20090719
  Serious: Yes (Other)
  Sender: FDA-Public Use
  Company Number: AU-PFIZER INC-2008088140

PATIENT

DRUGS (2)
  1. ZOLOFT [Suspect]
     Dates: end: 20080101
  2. WARFARIN SODIUM [Interacting]
     Dates: start: 20010101

REACTIONS (2)
  - DRUG INTERACTION [None]
  - HAEMORRHAGE [None]
